FAERS Safety Report 6904444-5 (Version None)
Quarter: 2010Q3

REPORT INFORMATION
  Report Type: 
  Country: None (occurrence: None)
  Receive Date: 20100804
  Receipt Date: 20090526
  Transmission Date: 20110219
  Serious: No
  Sender: FDA-Public Use
  Company Number: US-PFIZER INC-2009187968

PATIENT
  Sex: Female
  Weight: 106 kg

DRUGS (10)
  1. LYRICA [Suspect]
     Indication: FIBROMYALGIA
     Dosage: 450 MG, 1X/DAY
     Dates: start: 20080101
  2. ALPRAZOLAM [Interacting]
     Dosage: UNK
  3. LORAZEPAM [Suspect]
     Dosage: UNK
  4. METHADONE [Concomitant]
     Dosage: UNK
  5. DETROL [Concomitant]
     Dosage: UNK
  6. LEVOTHYROXINE [Concomitant]
     Dosage: UNK
  7. ALLOPURINOL [Concomitant]
     Dosage: UNK
  8. CYMBALTA [Concomitant]
     Dosage: UNK
  9. PREMARIN [Concomitant]
     Dosage: UNK
  10. MICARDIS [Concomitant]
     Dosage: UNK

REACTIONS (3)
  - DRUG INTERACTION [None]
  - SLEEP DISORDER [None]
  - SOMNOLENCE [None]
